FAERS Safety Report 11319176 (Version 1)
Quarter: 2015Q3

REPORT INFORMATION
  Report Type: Spontaneous
  Country: US (occurrence: None)
  Receive Date: 20150728
  Receipt Date: 20150728
  Transmission Date: 20151125
  Serious: Yes (Death, Hospitalization)
  Sender: FDA-Public Use
  Company Number: None

PATIENT
  Age: 57 Year
  Sex: Male
  Weight: 73.48 kg

DRUGS (10)
  1. RIBAVIRIN 200 MG KADMON [Suspect]
     Active Substance: RIBAVIRIN
     Indication: HEPATIC CIRRHOSIS
     Dosage: 3 TABS IN AM, 2 TABS IN PM
     Route: 048
     Dates: start: 20150629, end: 20150713
  2. PRILOSEC [Concomitant]
     Active Substance: OMEPRAZOLE MAGNESIUM
  3. METHADONE [Concomitant]
     Active Substance: METHADONE HYDROCHLORIDE
  4. PHENERGAN [Concomitant]
     Active Substance: PROMETHAZINE HYDROCHLORIDE
  5. VIEKIRA PAK [Suspect]
     Active Substance: DASABUVIR\OMBITASVIR\PARITAPREVIR\RITONAVIR
     Indication: HEPATITIS C
     Dosage: ONE PAK DAILY IN DIVIDED DOSES
     Route: 048
     Dates: start: 20150629, end: 20150713
  6. AMBIEN [Concomitant]
     Active Substance: ZOLPIDEM TARTRATE
  7. RIBAVIRIN 200 MG KADMON [Suspect]
     Active Substance: RIBAVIRIN
     Indication: HEPATITIS C
     Dosage: 3 TABS IN AM, 2 TABS IN PM
     Route: 048
     Dates: start: 20150629, end: 20150713
  8. SYMBICORT [Concomitant]
     Active Substance: BUDESONIDE\FORMOTEROL FUMARATE DIHYDRATE
  9. NORVASC [Concomitant]
     Active Substance: AMLODIPINE BESYLATE
  10. VIEKIRA PAK [Suspect]
     Active Substance: DASABUVIR\OMBITASVIR\PARITAPREVIR\RITONAVIR
     Indication: HEPATIC CIRRHOSIS
     Dosage: ONE PAK DAILY IN DIVIDED DOSES
     Route: 048
     Dates: start: 20150629, end: 20150713

REACTIONS (4)
  - Jaundice [None]
  - Unresponsive to stimuli [None]
  - Refusal of treatment by patient [None]
  - Pneumonia [None]

NARRATIVE: CASE EVENT DATE: 20150713
